FAERS Safety Report 19513456 (Version 2)
Quarter: 2021Q3

REPORT INFORMATION
  Report Type: Report from Study
  Country: None (occurrence: BR)
  Receive Date: 20210710
  Receipt Date: 20210715
  Transmission Date: 20211014
  Serious: No
  Sender: FDA-Public Use
  Company Number: BR-ABBVIE-21K-020-3980115-00

PATIENT
  Age: 44 Year
  Sex: Male
  Weight: 78 kg

DRUGS (4)
  1. SKYRIZI [Suspect]
     Active Substance: RISANKIZUMAB-RZAA
     Dosage: UNSPECIFIED DOSE?LOADING DOSE ? WEEK 04
     Route: 058
     Dates: start: 20210321, end: 20210321
  2. COVID?19 VACCINE [Concomitant]
     Indication: COVID-19 IMMUNISATION
     Dosage: FIRST DOSE
     Route: 030
     Dates: start: 20210615, end: 20210615
  3. SKYRIZI [Suspect]
     Active Substance: RISANKIZUMAB-RZAA
     Indication: PSORIASIS
     Dosage: UNSPECIFIED DOSE?LOADING DOSE ? WEEK 00
     Route: 058
     Dates: start: 20210219, end: 20210219
  4. BENICAR [Concomitant]
     Active Substance: OLMESARTAN MEDOXOMIL
     Indication: HYPERTENSION
     Dosage: UNKNOWN

REACTIONS (2)
  - Fibrin D dimer increased [Unknown]
  - COVID-19 [Recovering/Resolving]

NARRATIVE: CASE EVENT DATE: 202105
